FAERS Safety Report 9869032 (Version 25)
Quarter: 2015Q4

REPORT INFORMATION
  Report Type: Report from Study
  Country: CA (occurrence: CA)
  Receive Date: 20140205
  Receipt Date: 20151103
  Transmission Date: 20160305
  Serious: Yes (Hospitalization, Other)
  Sender: FDA-Public Use
  Company Number: CA-ROCHE-1291381

PATIENT
  Age: 34 Year
  Sex: Female
  Weight: 81 kg

DRUGS (16)
  1. BENADRYL [Suspect]
     Active Substance: DIPHENHYDRAMINE HYDROCHLORIDE
     Route: 042
  2. NAPROXEN. [Concomitant]
     Active Substance: NAPROXEN
  3. ZOPICLONE [Concomitant]
     Active Substance: ZOPICLONE
     Dosage: 7.5 TO 15 MG ONCE DAILY
     Route: 065
  4. AZITHROMYCIN [Concomitant]
     Active Substance: AZITHROMYCIN ANHYDROUS
     Dosage: 3 PILLS/WEEK, FOR 2 MONTHS
     Route: 065
  5. ACTEMRA [Suspect]
     Active Substance: TOCILIZUMAB
     Route: 042
     Dates: start: 20140527
  6. BENADRYL [Suspect]
     Active Substance: DIPHENHYDRAMINE HYDROCHLORIDE
     Indication: PREMEDICATION
     Route: 042
     Dates: start: 20131016
  7. ACTEMRA [Suspect]
     Active Substance: TOCILIZUMAB
     Indication: RHEUMATOID ARTHRITIS
     Route: 042
     Dates: start: 20130916
  8. PLAQUENIL [Concomitant]
     Active Substance: HYDROXYCHLOROQUINE SULFATE
  9. AZITHROMYCIN [Concomitant]
     Active Substance: AZITHROMYCIN ANHYDROUS
     Route: 065
  10. METHOTREXATE [Concomitant]
     Active Substance: METHOTREXATE
     Route: 058
  11. PREDNISONE. [Concomitant]
     Active Substance: PREDNISONE
     Dosage: WITH EXTRA 20MG
     Route: 065
     Dates: end: 20131015
  12. PREDNISONE. [Concomitant]
     Active Substance: PREDNISONE
     Route: 048
  13. RAMIPRIL. [Concomitant]
     Active Substance: RAMIPRIL
     Route: 048
  14. PREDNISONE. [Concomitant]
     Active Substance: PREDNISONE
     Route: 065
  15. FOLIC ACID. [Concomitant]
     Active Substance: FOLIC ACID
     Route: 048
  16. RAMIPRIL. [Concomitant]
     Active Substance: RAMIPRIL
     Route: 065
     Dates: start: 201401

REACTIONS (40)
  - Fungal skin infection [Unknown]
  - Swelling [Unknown]
  - Procedural pain [Unknown]
  - Rash [Recovering/Resolving]
  - Night sweats [Not Recovered/Not Resolved]
  - Nasopharyngitis [Not Recovered/Not Resolved]
  - Malaise [Unknown]
  - Incision site infection [Unknown]
  - Muscular weakness [Recovering/Resolving]
  - Sinusitis [Unknown]
  - Chest discomfort [Unknown]
  - Drug ineffective [Unknown]
  - Paranasal sinus discomfort [Unknown]
  - Joint crepitation [Unknown]
  - Palpitations [Unknown]
  - Campylobacter infection [Recovered/Resolved]
  - Gastroenteritis viral [Recovered/Resolved]
  - Musculoskeletal stiffness [Unknown]
  - Cardiomegaly [Unknown]
  - Chest pain [Unknown]
  - Fall [Unknown]
  - Vomiting [Not Recovered/Not Resolved]
  - Nausea [Not Recovered/Not Resolved]
  - Seasonal allergy [Unknown]
  - Dyspnoea [Unknown]
  - Blood pressure increased [Unknown]
  - Fibromyalgia [Unknown]
  - Polyarthritis [Unknown]
  - Hypopnoea [Unknown]
  - Somnolence [Unknown]
  - Vertigo [Unknown]
  - Urticaria [Unknown]
  - Appendicitis [Recovered/Resolved]
  - Cardiac failure [Unknown]
  - Anxiety [Not Recovered/Not Resolved]
  - Foot fracture [Unknown]
  - Swelling face [Unknown]
  - Pleuritic pain [Unknown]
  - Heart rate increased [Unknown]
  - Infusion related reaction [Unknown]

NARRATIVE: CASE EVENT DATE: 20130916
